FAERS Safety Report 9721822 (Version 1)
Quarter: 2013Q4

REPORT INFORMATION
  Report Type: Spontaneous
  Country: US (occurrence: US)
  Receive Date: 20131201
  Receipt Date: 20131201
  Transmission Date: 20140711
  Serious: No
  Sender: FDA-Public Use
  Company Number: US-ABBVIE-13P-163-1165782-00

PATIENT
  Age: 57 Year
  Sex: Male

DRUGS (1)
  1. ANDROGEL [Suspect]
     Indication: BLOOD TESTOSTERONE DECREASED
     Dosage: 40.5 MG IN AM AND 40.5MG IN PM
     Route: 061
     Dates: start: 2011

REACTIONS (3)
  - Inappropriate schedule of drug administration [Unknown]
  - Polycythaemia vera [Not Recovered/Not Resolved]
  - Blood testosterone decreased [Unknown]
